FAERS Safety Report 9407970 (Version 1)
Quarter: 2013Q1

REPORT INFORMATION
  Report Type: Spontaneous
  Country: US (occurrence: None)
  Receive Date: 20130312
  Receipt Date: 20130312
  Transmission Date: 20140127
  Serious: Yes (Hospitalization)
  Sender: FDA-Public Use
  Company Number: 145063-1

PATIENT
  Age: 54 Year
  Sex: Male
  Weight: 94 kg

DRUGS (1)
  1. LEUCOVORIN CALCIUM [Suspect]
     Dates: start: 20121123, end: 20130118

REACTIONS (2)
  - Abdominal pain [None]
  - Constipation [None]
